FAERS Safety Report 18577996 (Version 2)
Quarter: 2021Q4

REPORT INFORMATION
  Report Type: Other
  Country: US (occurrence: None)
  Receive Date: 20201204
  Receipt Date: 20211108
  Transmission Date: 20220304
  Serious: Yes (Death, Hospitalization)
  Sender: FDA-Public Use
  Company Number: US-ROCHE-2725421

PATIENT
  Age: 61 Year
  Sex: Male
  Weight: 81.720 kg

DRUGS (2)
  1. GAZYVA [Suspect]
     Active Substance: OBINUTUZUMAB
     Indication: Follicular lymphoma
     Dosage: 1000 MG VIAL,INFUSE?23/DEC/2019, 24/AUG/2020, 29/JUN/2020, 13/APR/2020, 17/FEB/2020 AND 29/OCT/2019
     Route: 042
     Dates: start: 20191028, end: 20200824
  2. RITUXAN [Concomitant]
     Active Substance: RITUXIMAB
     Route: 065

REACTIONS (1)
  - COVID-19 [Fatal]

NARRATIVE: CASE EVENT DATE: 20200928
